FAERS Safety Report 6761924-3 (Version None)
Quarter: 2010Q2

REPORT INFORMATION
  Report Type: 
  Country: None (occurrence: None)
  Receive Date: 20100609
  Receipt Date: 20100609
  Transmission Date: 20101027
  Serious: No
  Sender: FDA-Public Use
  Company Number: None

PATIENT
  Sex: Male
  Weight: 113.3993 kg

DRUGS (2)
  1. MOTRIN IB [Suspect]
     Indication: BACK PAIN
     Dosage: 2 TABLETS 3 TIMES A DAY PO
     Route: 048
     Dates: start: 20080101, end: 20100608
  2. MOTRIN IB [Suspect]
     Indication: NECK PAIN
     Dosage: 2 TABLETS 3 TIMES A DAY PO
     Route: 048
     Dates: start: 20080101, end: 20100608

REACTIONS (9)
  - ASTHENIA [None]
  - BACK PAIN [None]
  - DIZZINESS [None]
  - HEADACHE [None]
  - MALAISE [None]
  - NAUSEA [None]
  - PRODUCT QUALITY ISSUE [None]
  - PYREXIA [None]
  - TENDERNESS [None]
